FAERS Safety Report 12562036 (Version 1)
Quarter: 2016Q3

REPORT INFORMATION
  Report Type: Spontaneous
  Country: US (occurrence: US)
  Receive Date: 20160715
  Receipt Date: 20160715
  Transmission Date: 20161109
  Serious: No
  Sender: FDA-Public Use
  Company Number: US-009507513-1607USA004322

PATIENT
  Age: 70 Year
  Sex: Female

DRUGS (3)
  1. BYDUREON [Suspect]
     Active Substance: EXENATIDE
  2. JANUVIA [Suspect]
     Active Substance: SITAGLIPTIN PHOSPHATE
     Indication: TYPE 2 DIABETES MELLITUS
     Dosage: 50 MG, UNK
     Route: 048
  3. JANUVIA [Suspect]
     Active Substance: SITAGLIPTIN PHOSPHATE
     Dosage: 100 MG, UNK
     Route: 048

REACTIONS (8)
  - Cyst [Unknown]
  - Bone pain [Unknown]
  - Insomnia [Unknown]
  - Arthropathy [Unknown]
  - Renal cyst [Unknown]
  - Palpitations [Unknown]
  - Gait disturbance [Unknown]
  - Thyroid cyst [Unknown]

NARRATIVE: CASE EVENT DATE: 2014
